FAERS Safety Report 18013439 (Version 3)
Quarter: 2020Q3

REPORT INFORMATION
  Report Type: Spontaneous
  Country: US (occurrence: US)
  Receive Date: 20200713
  Receipt Date: 20200903
  Transmission Date: 20201103
  Serious: No
  Sender: FDA-Public Use
  Company Number: US-PFIZER INC-2020261221

PATIENT
  Age: 11 Year
  Sex: Female

DRUGS (1)
  1. GENOTROPIN [Suspect]
     Active Substance: SOMATROPIN
     Indication: GROWTH HORMONE DEFICIENCY
     Dosage: 1.6 MG, DAILY
     Dates: start: 20190703

REACTIONS (3)
  - Device use error [Unknown]
  - Product dose omission issue [Unknown]
  - Device breakage [Unknown]

NARRATIVE: CASE EVENT DATE: 20200706
